FAERS Safety Report 15498561 (Version 1)
Quarter: 2018Q4

REPORT INFORMATION
  Report Type: Spontaneous
  Country: US (occurrence: US)
  Receive Date: 20181005
  Receipt Date: 20181005
  Transmission Date: 20190205
  Serious: No
  Sender: FDA-Public Use
  Company Number: None

PATIENT
  Weight: 57.4 kg

DRUGS (2)
  1. ETOPOSIDE (VP-16) [Suspect]
     Active Substance: ETOPOSIDE
     Dates: end: 20180822
  2. CARBOPLATIN (241240) [Suspect]
     Active Substance: CARBOPLATIN
     Dates: end: 20150820

REACTIONS (6)
  - Cough [None]
  - Fatigue [None]
  - Haemophilus test positive [None]
  - Sputum culture positive [None]
  - Dyspnoea [None]
  - Sputum purulent [None]
